FAERS Safety Report 12442726 (Version 1)
Quarter: 2016Q2

REPORT INFORMATION
  Report Type: Spontaneous
  Country: US (occurrence: None)
  Receive Date: 20160606
  Receipt Date: 20160606
  Transmission Date: 20160815
  Serious: No
  Sender: FDA-Public Use
  Company Number: None

PATIENT
  Age: 28 Year
  Sex: Female
  Weight: 72.58 kg

DRUGS (4)
  1. IBUPROFEN. [Concomitant]
     Active Substance: IBUPROFEN
  2. AMOXICILLIN. [Concomitant]
     Active Substance: AMOXICILLIN
  3. ACETAMINOPHEN-COD#3 TAB [Suspect]
     Active Substance: ACETAMINOPHEN\CODEINE PHOSPHATE
     Indication: TOOTH DISORDER
     Route: 048
     Dates: start: 20160525, end: 20160603
  4. SUNDOWN HAIR SKIN NAILS [Concomitant]

REACTIONS (6)
  - Abdominal pain [None]
  - Middle insomnia [None]
  - Hypophagia [None]
  - Nausea [None]
  - Insomnia [None]
  - Vomiting [None]

NARRATIVE: CASE EVENT DATE: 20160604
